FAERS Safety Report 4530472-3 (Version None)
Quarter: 2004Q4

REPORT INFORMATION
  Report Type: 
  Country: None (occurrence: None)
  Receive Date: 20041216
  Receipt Date: 20041213
  Transmission Date: 20050328
  Serious: Yes (Death, Hospitalization)
  Sender: FDA-Public Use
  Company Number: HQWYE239012AUG04

PATIENT
  Age: 46 Year
  Sex: Female

DRUGS (9)
  1. RAPAMUNE [Suspect]
     Indication: IMMUNOSUPPRESSANT DRUG THERAPY
     Dosage: 5 MG 1X PER 1 DAY ORAL
     Route: 048
     Dates: start: 20040429
  2. RAPAMUNE [Suspect]
     Indication: PROPHYLAXIS AGAINST TRANSPLANT REJECTION
     Dosage: 5 MG 1X PER 1 DAY ORAL
     Route: 048
     Dates: start: 20040429
  3. PREDNISONE [Concomitant]
  4. METHYLPREDNISOLONE [Concomitant]
  5. HYDRALAZINE HCL TAB [Concomitant]
  6. PROPRANOLOL [Concomitant]
  7. CYCLOSPORINE [Concomitant]
  8. FUROSEMIDE [Concomitant]
  9. SULFAMETHOXAZOLE/TRIMETHOPRIM ^DAK^ (SULFAMETHOXAZOLE/TRIMETHOPRIM) [Concomitant]

REACTIONS (6)
  - CHEST PAIN [None]
  - DYSPNOEA [None]
  - KIDNEY TRANSPLANT REJECTION [None]
  - MYOCARDIAL INFARCTION [None]
  - THERAPY NON-RESPONDER [None]
  - URINE OUTPUT DECREASED [None]
